FAERS Safety Report 11852271 (Version 1)
Quarter: 2015Q4

REPORT INFORMATION
  Report Type: Spontaneous
  Country: US (occurrence: US)
  Receive Date: 20151218
  Receipt Date: 20151218
  Transmission Date: 20160305
  Serious: Yes (Hospitalization, Other)
  Sender: FDA-Public Use
  Company Number: US-DSJP-DSU-2015-128674

PATIENT

DRUGS (6)
  1. LIPITOR [Concomitant]
     Active Substance: ATORVASTATIN CALCIUM
     Indication: PRODUCT USED FOR UNKNOWN INDICATION
     Dosage: 20 MG, QD
     Dates: start: 2009
  2. LASIX [Concomitant]
     Active Substance: FUROSEMIDE
     Indication: PRODUCT USED FOR UNKNOWN INDICATION
     Dosage: 40 MG, QD
  3. BENICAR [Suspect]
     Active Substance: OLMESARTAN MEDOXOMIL
     Indication: HYPERTENSION
     Dosage: 40 MG, QD
     Dates: start: 2009, end: 2012
  4. MISOPROSTOL. [Concomitant]
     Active Substance: MISOPROSTOL
     Indication: PRODUCT USED FOR UNKNOWN INDICATION
     Dosage: 200 MG, BID
     Dates: start: 2012
  5. BENICAR [Suspect]
     Active Substance: OLMESARTAN MEDOXOMIL
     Dosage: UNK
     Dates: start: 2010
  6. ACEBUTOLOL [Concomitant]
     Active Substance: ACEBUTOLOL
     Indication: PRODUCT USED FOR UNKNOWN INDICATION
     Dosage: 200 MG, BID

REACTIONS (16)
  - Gastrooesophageal reflux disease [Unknown]
  - Acute kidney injury [Recovered/Resolved]
  - Diabetic gastroparesis [Unknown]
  - Malabsorption [Not Recovered/Not Resolved]
  - Syncope [Unknown]
  - Hiatus hernia [Unknown]
  - Abdominal hernia [Unknown]
  - Gastritis [Unknown]
  - Metaplasia [Unknown]
  - Cholecystitis [Unknown]
  - Large intestine polyp [Unknown]
  - Dizziness [Unknown]
  - Gastroenteritis viral [Recovered/Resolved]
  - Diabetes mellitus inadequate control [Recovering/Resolving]
  - Hepatic steatosis [Unknown]
  - Rectal abscess [Unknown]

NARRATIVE: CASE EVENT DATE: 2009
